FAERS Safety Report 9356274 (Version 1)
Quarter: 2013Q2

REPORT INFORMATION
  Report Type: Spontaneous
  Country: GB (occurrence: GB)
  Receive Date: 20130619
  Receipt Date: 20130619
  Transmission Date: 20140414
  Serious: Yes (Death)
  Sender: FDA-Public Use
  Company Number: GB-PFIZER INC-2013178925

PATIENT
  Age: 78 Year
  Sex: Female

DRUGS (1)
  1. VIAGRA [Suspect]

REACTIONS (1)
  - Death [Fatal]
